FAERS Safety Report 20579187 (Version 1)
Quarter: 2022Q1

REPORT INFORMATION
  Report Type: Spontaneous
  Country: IT (occurrence: IT)
  Receive Date: 20220310
  Receipt Date: 20220310
  Transmission Date: 20220423
  Serious: Yes (Hospitalization, Other)
  Sender: FDA-Public Use
  Company Number: IT-ABBVIE-22K-083-4309621-00

PATIENT
  Age: 52 Year
  Sex: Male

DRUGS (3)
  1. VALPROATE SODIUM [Suspect]
     Active Substance: VALPROATE SODIUM
     Indication: Intentional self-injury
     Dosage: TOTAL
     Route: 048
     Dates: start: 20191215, end: 20191215
  2. METHADONE HYDROCHLORIDE [Suspect]
     Active Substance: METHADONE HYDROCHLORIDE
     Indication: Intentional self-injury
     Dosage: TOTAL
     Route: 048
     Dates: start: 20191215, end: 20191215
  3. GABAPENTIN [Suspect]
     Active Substance: GABAPENTIN
     Indication: Intentional self-injury
     Route: 048
     Dates: start: 20191215, end: 20191215

REACTIONS (5)
  - Intentional self-injury [Not Recovered/Not Resolved]
  - Sopor [Not Recovered/Not Resolved]
  - Drug abuse [Unknown]
  - Intentional product misuse [Unknown]
  - Somnolence [Unknown]

NARRATIVE: CASE EVENT DATE: 20191215
